FAERS Safety Report 6842331-1 (Version None)
Quarter: 2010Q3

REPORT INFORMATION
  Report Type: 
  Country: None (occurrence: None)
  Receive Date: 20100714
  Receipt Date: 20070725
  Transmission Date: 20110219
  Serious: No
  Sender: FDA-Public Use
  Company Number: US-PFIZER INC-2007063283

PATIENT
  Sex: Female
  Weight: 45.454 kg

DRUGS (19)
  1. CHANTIX [Suspect]
     Indication: SMOKING CESSATION THERAPY
     Dates: start: 20070701
  2. CARISOPRODOL [Concomitant]
  3. PREMARIN [Concomitant]
  4. ZETIA [Concomitant]
  5. DURAGESIC-100 [Concomitant]
  6. MORPHINE [Concomitant]
  7. CRESTOR [Concomitant]
  8. TOPROL-XL [Concomitant]
  9. DIAZEPAM [Concomitant]
  10. PREDNISOLONE [Concomitant]
  11. ADVAIR DISKUS 100/50 [Concomitant]
  12. INSULIN [Concomitant]
  13. RANITIDINE [Concomitant]
  14. LEVOTHYROXINE SODIUM [Concomitant]
  15. BISACODYL [Concomitant]
  16. MONTELUKAST SODIUM [Concomitant]
  17. HYDRALAZINE HCL [Concomitant]
  18. NITROGLYCERIN [Concomitant]
  19. METOCLOPRAMIDE [Concomitant]

REACTIONS (1)
  - VOMITING [None]
